FAERS Safety Report 12693795 (Version 1)
Quarter: 2016Q3

REPORT INFORMATION
  Report Type: Report from Study
  Country: JP (occurrence: JP)
  Receive Date: 20160829
  Receipt Date: 20160829
  Transmission Date: 20161109
  Serious: Yes (Other)
  Sender: FDA-Public Use
  Company Number: JP-VIFOR (INTERNATIONAL) INC.-VIT-2016-04457

PATIENT
  Age: 83 Year
  Sex: Male

DRUGS (19)
  1. MIRCERA [Suspect]
     Active Substance: METHOXY POLYETHYLENE GLYCOL-EPOETIN BETA
     Route: 058
     Dates: start: 20141023, end: 20141127
  2. DIOVAN [Suspect]
     Active Substance: VALSARTAN
     Indication: PRODUCT USED FOR UNKNOWN INDICATION
     Route: 048
     Dates: end: 20150709
  3. KALIMATE [Concomitant]
     Active Substance: CALCIUM POLYSTYRENE SULFONATE
     Indication: GLOMERULONEPHRITIS CHRONIC
     Route: 048
     Dates: start: 20150710, end: 20150806
  4. KALIMATE [Concomitant]
     Active Substance: CALCIUM POLYSTYRENE SULFONATE
     Route: 048
     Dates: start: 20150807
  5. MIRCERA [Suspect]
     Active Substance: METHOXY POLYETHYLENE GLYCOL-EPOETIN BETA
     Route: 058
     Dates: start: 20150122, end: 20150219
  6. DIART [Concomitant]
     Active Substance: AZOSEMIDE
     Route: 048
  7. MIRCERA [Suspect]
     Active Substance: METHOXY POLYETHYLENE GLYCOL-EPOETIN BETA
     Route: 058
     Dates: start: 20140703, end: 20140925
  8. CRESTOR [Concomitant]
     Active Substance: ROSUVASTATIN CALCIUM
     Route: 048
  9. KIPRES [Concomitant]
     Active Substance: MONTELUKAST SODIUM
     Route: 048
  10. KREMEZIN [Concomitant]
     Active Substance: ACTIVATED CHARCOAL
     Route: 048
     Dates: start: 20131120, end: 20140311
  11. MIRCERA [Suspect]
     Active Substance: METHOXY POLYETHYLENE GLYCOL-EPOETIN BETA
     Route: 042
     Dates: start: 20141225, end: 20141225
  12. MIRCERA [Suspect]
     Active Substance: METHOXY POLYETHYLENE GLYCOL-EPOETIN BETA
     Route: 058
     Dates: start: 20150319
  13. MIRCERA [Suspect]
     Active Substance: METHOXY POLYETHYLENE GLYCOL-EPOETIN BETA
     Indication: NEPHROGENIC ANAEMIA
     Route: 058
     Dates: start: 20131120, end: 20140114
  14. ATELEC [Concomitant]
     Active Substance: CILNIDIPINE
     Route: 048
  15. BONOTEO [Concomitant]
     Active Substance: MINODRONIC ACID
     Route: 048
     Dates: start: 20131120
  16. MIRCERA [Suspect]
     Active Substance: METHOXY POLYETHYLENE GLYCOL-EPOETIN BETA
     Route: 058
     Dates: start: 20140115, end: 20140605
  17. FEBURIC [Concomitant]
     Active Substance: FEBUXOSTAT
     Route: 048
     Dates: start: 20131120
  18. KREMEZIN [Concomitant]
     Active Substance: ACTIVATED CHARCOAL
     Route: 048
     Dates: start: 20140312
  19. AZEPTIN [Concomitant]
     Route: 048
     Dates: start: 20131218

REACTIONS (5)
  - Hyperkalaemia [Recovered/Resolved]
  - Oedema peripheral [Recovered/Resolved]
  - Upper respiratory tract inflammation [Recovered/Resolved]
  - Bradycardia [Recovered/Resolved]
  - Thrombocytopenia [Recovered/Resolved]

NARRATIVE: CASE EVENT DATE: 20140212
